FAERS Safety Report 9629780 (Version 5)
Quarter: 2014Q2

REPORT INFORMATION
  Report Type: Report from Study
  Country: JP (occurrence: JP)
  Receive Date: 20131017
  Receipt Date: 20140424
  Transmission Date: 20141212
  Serious: Yes (Hospitalization)
  Sender: FDA-Public Use
  Company Number: JP-PFIZER INC-2013292770

PATIENT
  Age: 74 Year
  Sex: Female
  Weight: 55.6 kg

DRUGS (11)
  1. XALKORI [Suspect]
     Indication: NON-SMALL CELL LUNG CANCER
     Dosage: 250 MG, 2X/DAY
     Route: 048
     Dates: start: 20130208, end: 20130220
  2. XALKORI [Suspect]
     Dosage: 250 MG, 2X/DAY
     Route: 048
     Dates: start: 20130301, end: 20130308
  3. XALKORI [Suspect]
     Dosage: 250 MG, 2X/DAY
     Route: 048
     Dates: start: 20130315, end: 20130701
  4. ALDACTONE [Suspect]
     Dosage: 25 MG, 1X/DAY
     Route: 048
     Dates: start: 20130408
  5. LOXONIN [Concomitant]
     Dosage: 60 MG, 3X/DAY
     Route: 048
  6. MUCOSTA [Concomitant]
     Dosage: 100 MG, 3X/DAY
     Route: 048
  7. AMLODIN [Concomitant]
     Dosage: 10 MG, 1X/DAY
     Route: 048
  8. RENIVACE [Concomitant]
     Dosage: 5 MG, 1X/DAY
     Route: 048
  9. PRIMPERAN [Concomitant]
     Dosage: 5 MG, 3X/DAY
     Route: 048
     Dates: start: 20130218
  10. URSO [Concomitant]
     Dosage: 100 MG, 3X/DAY
     Route: 048
     Dates: start: 20130308
  11. LASIX [Concomitant]
     Dosage: 20 MG, 1X/DAY
     Route: 048
     Dates: start: 20130408

REACTIONS (1)
  - Hyperkalaemia [Recovered/Resolved]
